FAERS Safety Report 6019803-5 (Version None)
Quarter: 2008Q4

REPORT INFORMATION
  Report Type: 
  Country: None (occurrence: None)
  Receive Date: 20081224
  Receipt Date: 20081217
  Transmission Date: 20090506
  Serious: Yes (Other)
  Sender: FDA-Public Use
  Company Number: US-ROXANE LABORATORIES, INC.-2008-RO-00452RO

PATIENT
  Age: 48 Year
  Sex: Male

DRUGS (5)
  1. ZOLPIDEM [Suspect]
     Dosage: 10MG
  2. ZOLPIDEM [Suspect]
     Dosage: 30MG
  3. ACETAMINOPHEN AND HYDROCODONE BITARTRATE [Suspect]
  4. FENTANYL TRANSDERMAL SYSTEM [Suspect]
  5. ESOMEPRAZOLE MAGNESIUM [Suspect]

REACTIONS (3)
  - PARASOMNIA [None]
  - SOMNAMBULISM [None]
  - SUDDEN ONSET OF SLEEP [None]
